FAERS Safety Report 17420232 (Version 2)
Quarter: 2020Q2

REPORT INFORMATION
  Report Type: Report from Study
  Country: NL (occurrence: NL)
  Receive Date: 20200214
  Receipt Date: 20200408
  Transmission Date: 20200713
  Serious: Yes (Life-Threatening, Hospitalization)
  Sender: FDA-Public Use
  Company Number: NL-ROCHE-2542858

PATIENT
  Age: 73 Year
  Sex: Female

DRUGS (4)
  1. BEVACIZUMAB. [Suspect]
     Active Substance: BEVACIZUMAB
     Indication: COLORECTAL CANCER
     Dosage: ON 30/DEC/2019, SHE RECEIVED THE MOST RECENT DOSE OF BEVACIZUMAB PRIOR TO SERIOUS ADVERSE EVENT ONSE
     Route: 042
     Dates: start: 20191114
  2. LEUCOVORIN [FOLINIC ACID] [Suspect]
     Active Substance: LEUCOVORIN
     Indication: COLORECTAL CANCER
     Dosage: ON 30/DEC/2019, SHE RECEIVED THE MOST RECENT DOSE OF LEUCOVORIN (FOLINIC ACID) PRIOR TO SERIOUS ADVE
     Route: 042
  3. OXALIPLATIN. [Suspect]
     Active Substance: OXALIPLATIN
     Indication: COLORECTAL CANCER
     Dosage: ON 30/DEC/2019, SHE RECEIVED THE MOST RECENT DOSE OF OXALIPLATIN PRIOR TO SERIOUS ADVERSE EVENT ONSE
     Route: 042
     Dates: start: 20191114
  4. FLUOROURACIL. [Suspect]
     Active Substance: FLUOROURACIL
     Indication: COLORECTAL CANCER
     Dosage: 400/2400 MG/M2 BSA?ON 30/DEC/2019, SHE RECEIVED THE MOST RECENT DOSE OF 5-FLUOROURACIL PRIOR TO SERI
     Route: 042

REACTIONS (3)
  - Impaired gastric emptying [Not Recovered/Not Resolved]
  - Pneumonia aspiration [Recovering/Resolving]
  - Small intestinal obstruction [Recovering/Resolving]

NARRATIVE: CASE EVENT DATE: 20200119
